FAERS Safety Report 9754398 (Version 2)
Quarter: 2013Q4

REPORT INFORMATION
  Report Type: Spontaneous
  Country: JP (occurrence: JP)
  Receive Date: 20131213
  Receipt Date: 20131223
  Transmission Date: 20140711
  Serious: Yes (Death, Hospitalization, Other)
  Sender: FDA-Public Use
  Company Number: ALCN2013JP006197

PATIENT
  Age: 65 Year
  Sex: Male

DRUGS (9)
  1. FLUORESCITE [Suspect]
     Dosage: 2.5 ML, UNK
     Route: 042
     Dates: start: 20131202, end: 20131202
  2. LUPRAC [Concomitant]
     Indication: HYPERTENSION
     Dosage: 1 DF, UNK
     Route: 048
  3. METGLUCO [Concomitant]
     Indication: DIABETES MELLITUS
     Dosage: 1 DF, UNK
     Route: 048
  4. BAYASPIRIN [Concomitant]
     Indication: DEEP VEIN THROMBOSIS
     Dosage: 100 MG, UNK
     Route: 048
  5. REZALTAS [Concomitant]
     Indication: DIABETES MELLITUS
     Dosage: 1 DF, UNK
     Route: 048
  6. JANUVIA [Concomitant]
     Indication: DIABETES MELLITUS
     Dosage: 1 DF, UNK
     Route: 048
  7. AMARYL [Concomitant]
     Indication: DIABETES MELLITUS
     Dosage: 1 DF, UNK
     Route: 048
  8. CILOSTAZOL [Concomitant]
     Indication: DEEP VEIN THROMBOSIS
     Dosage: 100 MG, UNK
     Route: 048
  9. PRERAN [Concomitant]
     Indication: HYPERTENSION
     Dosage: 1 DF, UNK
     Route: 048

REACTIONS (3)
  - Anaphylactic shock [Fatal]
  - Myocardial infarction [Fatal]
  - Cardiac arrest [Fatal]
